FAERS Safety Report 4511585-9 (Version None)
Quarter: 2004Q4

REPORT INFORMATION
  Report Type: 
  Country: None (occurrence: None)
  Receive Date: 20041129
  Receipt Date: 20041007
  Transmission Date: 20050328
  Serious: No
  Sender: FDA-Public Use
  Company Number: US-BRISTOL-MYERS SQUIBB COMPANY-12725859

PATIENT
  Age: 56 Year
  Sex: Female
  Weight: 56 kg

DRUGS (3)
  1. ABILIFY [Suspect]
     Indication: BIPOLAR DISORDER
     Route: 048
     Dates: start: 20041006
  2. BIAXIN [Concomitant]
     Dates: start: 20041006
  3. DEPAKOTE [Concomitant]
     Dosage: 250-500 MG/DAY

REACTIONS (1)
  - SOMNOLENCE [None]
